FAERS Safety Report 4561337-9 (Version None)
Quarter: 2005Q1

REPORT INFORMATION
  Report Type: 
  Country: None (occurrence: None)
  Receive Date: 20050124
  Receipt Date: 20050114
  Transmission Date: 20050727
  Serious: Yes (Death, Hospitalization)
  Sender: FDA-Public Use
  Company Number: 430004E04USA

PATIENT
  Age: 52 Year
  Sex: Male

DRUGS (3)
  1. NOVANTRONE [Suspect]
     Indication: ACUTE MYELOID LEUKAEMIA
     Dates: start: 20041016, end: 20041022
  2. ETOPOSIDE [Suspect]
     Dates: start: 20041016, end: 20041023
  3. CYTARABINE [Concomitant]

REACTIONS (21)
  - APHAGIA [None]
  - CELLULITIS [None]
  - CHILLS [None]
  - DIZZINESS [None]
  - FEBRILE NEUTROPENIA [None]
  - FLUID INTAKE REDUCED [None]
  - FUNGAEMIA [None]
  - FUSARIUM INFECTION [None]
  - HAEMOGLOBIN DECREASED [None]
  - HEADACHE [None]
  - INFLAMMATION [None]
  - MUSCLE DISORDER [None]
  - PANCYTOPENIA [None]
  - PERIODONTAL DISEASE [None]
  - PLATELET COUNT DECREASED [None]
  - PNEUMONIA FUNGAL [None]
  - REFUSAL OF TREATMENT BY PATIENT [None]
  - SINUSITIS [None]
  - STAPHYLOCOCCAL BACTERAEMIA [None]
  - TOOTH ABSCESS [None]
  - WHITE BLOOD CELL COUNT DECREASED [None]
